FAERS Safety Report 22610303 (Version 3)
Quarter: 2023Q4

REPORT INFORMATION
  Report Type: Spontaneous
  Country: FR (occurrence: FR)
  Receive Date: 20230616
  Receipt Date: 20231023
  Transmission Date: 20240110
  Serious: Yes (Hospitalization, Other)
  Sender: FDA-Public Use
  Company Number: FR-009507513-1709FRA007380

PATIENT
  Age: 78 Year
  Sex: Female
  Weight: 68 kg

DRUGS (20)
  1. SINGULAIR [Suspect]
     Active Substance: MONTELUKAST SODIUM
     Indication: Asthma
     Dosage: 100 MG, 1D
     Route: 048
     Dates: start: 2015
  2. SINGULAIR [Suspect]
     Active Substance: MONTELUKAST SODIUM
     Indication: Asthma
     Dosage: 10 MG, QD
     Route: 048
  3. ALBUTEROL SULFATE [Suspect]
     Active Substance: ALBUTEROL SULFATE
     Indication: Asthma
     Dosage: 1 DF, PRN/1 INHALATION IN CASE OF SHORTNESS OF BREATH
     Dates: start: 201708
  4. FLUCONAZOLE [Suspect]
     Active Substance: FLUCONAZOLE
     Indication: Fungal infection
     Dosage: 50 MOUTHWASHES
     Route: 002
     Dates: start: 201708
  5. FLUCONAZOLE [Suspect]
     Active Substance: FLUCONAZOLE
     Indication: Fungal infection
     Dosage: UNK (UNK (DESC DOSE: 50 MOUTHWASHES))
     Route: 065
     Dates: start: 201708
  6. FLUCONAZOLE [Suspect]
     Active Substance: FLUCONAZOLE
     Dosage: 50 MOUTHWASHES
     Route: 002
     Dates: start: 201708
  7. GLYCOPYRRONIUM\INDACATEROL [Suspect]
     Active Substance: GLYCOPYRRONIUM\INDACATEROL
     Indication: Chronic obstructive pulmonary disease
     Dosage: 1 DF, 1D, 85 MCG/43 MCG
     Dates: start: 201708
  8. BUMETANIDE [Suspect]
     Active Substance: BUMETANIDE
     Indication: Hypertension
     Dosage: 5 MG, UNK
     Route: 048
     Dates: start: 201708
  9. PULMICORT TURBUHALER [Suspect]
     Active Substance: BUDESONIDE
     Indication: Chronic obstructive pulmonary disease
     Dosage: 200 MICROGRAM, BID
     Dates: start: 2015
  10. POTASSIUM CHLORIDE [Suspect]
     Active Substance: POTASSIUM CHLORIDE
     Indication: Hypokalaemia
     Dosage: 2 DF, QD
     Route: 048
     Dates: start: 201708
  11. POTASSIUM CHLORIDE [Suspect]
     Active Substance: POTASSIUM CHLORIDE
     Dosage: 2 MG
     Route: 048
     Dates: start: 201708
  12. XELODA [Suspect]
     Active Substance: CAPECITABINE
     Indication: Rectal cancer
     Dosage: 825 MILLIGRAM/SQ. METER, CYCLICAL
     Route: 048
     Dates: start: 2006, end: 2006
  13. PREDNISONE [Suspect]
     Active Substance: PREDNISONE
     Indication: Chronic obstructive pulmonary disease
     Dosage: 12 MG, QD (DAILY DOSE: 12.0 MG)
     Route: 048
     Dates: start: 201708
  14. OXALIPLATIN [Suspect]
     Active Substance: OXALIPLATIN
     Indication: Rectal cancer
     Dosage: 50 MG, UNK
     Route: 042
     Dates: start: 2006, end: 2006
  15. THEOPHYLLINE [Suspect]
     Active Substance: THEOPHYLLINE
     Indication: Chronic obstructive pulmonary disease
     Dosage: 300 MG, BID
     Route: 048
  16. THEOPHYLLINE [Suspect]
     Active Substance: THEOPHYLLINE
     Dosage: 300 MG (DAILY DOSE: 600.0 MG)
     Route: 048
  17. THEOPHYLLINE [Suspect]
     Active Substance: THEOPHYLLINE
     Dosage: 2 DF (300MG)
     Route: 048
     Dates: start: 2015
  18. BOTOX [Suspect]
     Active Substance: ONABOTULINUMTOXINA
     Indication: Anal incontinence
     Dosage: 500 DOSAGE FORM, SINGLE (9 INJECTIONS OF 500 UNITS)
     Route: 030
     Dates: start: 201201, end: 201201
  19. BOTOX [Suspect]
     Active Substance: ONABOTULINUMTOXINA
     Dosage: 500 UNITS, SINGLE
     Route: 030
  20. BOTOX [Suspect]
     Active Substance: ONABOTULINUMTOXINA
     Dosage: 500 DF, Z
     Route: 030
     Dates: start: 202101

REACTIONS (6)
  - Arteriosclerosis coronary artery [Not Recovered/Not Resolved]
  - Dilated cardiomyopathy [Not Recovered/Not Resolved]
  - Ejection fraction decreased [Not Recovered/Not Resolved]
  - Product use in unapproved indication [Unknown]
  - Overdose [Unknown]
  - Product prescribing issue [Unknown]

NARRATIVE: CASE EVENT DATE: 20170801
